FAERS Safety Report 24792207 (Version 2)
Quarter: 2025Q3

REPORT INFORMATION
  Report Type: Spontaneous
  Country: US (occurrence: US)
  Receive Date: 20241231
  Receipt Date: 20250802
  Transmission Date: 20251020
  Serious: Yes (Other)
  Sender: ALEXION PHARMACEUTICALS
  Company Number: US-AstraZeneca-CH-00773361A

PATIENT

DRUGS (1)
  1. ONGLYZA [Suspect]
     Active Substance: SAXAGLIPTIN HYDROCHLORIDE
     Route: 065

REACTIONS (8)
  - Myocardial infarction [Unknown]
  - Hypersensitivity [Unknown]
  - Blood test abnormal [Unknown]
  - Lip swelling [Unknown]
  - Single functional kidney [Unknown]
  - Chest pain [Unknown]
  - Dyspnoea [Unknown]
  - Swelling [Unknown]
